FAERS Safety Report 8265788-0 (Version None)
Quarter: 2012Q2

REPORT INFORMATION
  Report Type: 
  Country: None (occurrence: None)
  Receive Date: 20120406
  Receipt Date: 20120403
  Transmission Date: 20120825
  Serious: Yes (Death, Hospitalization)
  Sender: FDA-Public Use
  Company Number: DE-ROCHE-1040531

PATIENT
  Age: 76 Year
  Sex: Female
  Weight: 62 kg

DRUGS (4)
  1. LERCANIDIPINE [Concomitant]
  2. VEMURAFENIB [Suspect]
     Indication: METASTATIC MALIGNANT MELANOMA
     Dosage: DATE OF LAST DOSE PRIOR TO SAE: 09/FEB/2012
     Route: 048
     Dates: start: 20120113
  3. ENALAPRIL MALEATE [Concomitant]
  4. BISOPROLOL FUMARATE [Concomitant]

REACTIONS (1)
  - CHRONIC FATIGUE SYNDROME [None]
